FAERS Safety Report 24638828 (Version 1)
Quarter: 2024Q4

REPORT INFORMATION
  Report Type: Spontaneous
  Country: FR (occurrence: FR)
  Receive Date: 20241119
  Receipt Date: 20241119
  Transmission Date: 20250115
  Serious: No
  Sender: EMERGENT BIOSOLUTIONS
  Company Number: US-Emergent Biosolutions-24000187

PATIENT
  Age: 49 Year
  Sex: Male

DRUGS (5)
  1. CNJ-016 [Suspect]
     Active Substance: HUMAN VACCINIA VIRUS IMMUNE GLOBULIN
     Indication: Monkeypox
     Dosage: 6000 INTERNATIONAL UNIT/KILOGRAM, 2 DOSES
     Route: 042
  2. TECOVIRIMAT [Concomitant]
     Active Substance: TECOVIRIMAT
     Indication: Monkeypox
     Dosage: UNK
     Route: 065
  3. TECOVIRIMAT [Concomitant]
     Active Substance: TECOVIRIMAT
     Dosage: UNK
     Route: 065
     Dates: start: 20221125
  4. TENOFOVIR [Concomitant]
     Active Substance: TENOFOVIR
     Indication: HIV infection
     Dosage: UNK
     Route: 065
  5. TENOFOVIR [Concomitant]
     Active Substance: TENOFOVIR
     Indication: Hepatitis B

REACTIONS (1)
  - Off label use [Unknown]
